FAERS Safety Report 18063104 (Version 1)
Quarter: 2020Q3

REPORT INFORMATION
  Report Type: Report from Study
  Country: US (occurrence: US)
  Receive Date: 20200723
  Receipt Date: 20200723
  Transmission Date: 20201103
  Serious: No
  Sender: FDA-Public Use
  Company Number: NVSC2020US203187

PATIENT
  Age: 57 Year
  Sex: Male

DRUGS (1)
  1. ENTRESTO [Suspect]
     Active Substance: SACUBITRIL\VALSARTAN
     Indication: PRODUCT USED FOR UNKNOWN INDICATION
     Dosage: 49.51 MG, BID
     Route: 048
     Dates: start: 202003, end: 20200717

REACTIONS (8)
  - Dizziness [Recovering/Resolving]
  - Malaise [Recovering/Resolving]
  - Product dose omission issue [Recovering/Resolving]
  - Dyspnoea [Recovering/Resolving]
  - Throat clearing [Unknown]
  - Cough [Unknown]
  - Therapeutic product effect increased [Recovering/Resolving]
  - Vein disorder [Not Recovered/Not Resolved]

NARRATIVE: CASE EVENT DATE: 202003
